FAERS Safety Report 24912628 (Version 5)
Quarter: 2025Q2

REPORT INFORMATION
  Report Type: Spontaneous
  Country: US (occurrence: US)
  Receive Date: 20250131
  Receipt Date: 20250424
  Transmission Date: 20250716
  Serious: No
  Sender: PFIZER
  Company Number: US-PFIZER INC-202500015433

PATIENT
  Age: 8 Year
  Sex: Female

DRUGS (2)
  1. GENOTROPIN [Suspect]
     Active Substance: SOMATROPIN
     Dosage: 1.1 MG, DAILY
  2. GENOTROPIN [Suspect]
     Active Substance: SOMATROPIN
     Dosage: 0.9 MG

REACTIONS (3)
  - Device issue [Unknown]
  - Device breakage [Unknown]
  - Drug dose omission by device [Unknown]
